FAERS Safety Report 6913013-2 (Version None)
Quarter: 2010Q3

REPORT INFORMATION
  Report Type: 
  Country: None (occurrence: None)
  Receive Date: 20100806
  Receipt Date: 20090529
  Transmission Date: 20110219
  Serious: No
  Sender: FDA-Public Use
  Company Number: US-PFIZER INC-2009222410

PATIENT
  Sex: Male
  Weight: 81.6 kg

DRUGS (4)
  1. DETROL [Suspect]
     Dosage: 2 MG, 1X/DAY
     Dates: start: 20090528
  2. AGGRENOX [Concomitant]
     Dosage: UNK
  3. COREG [Concomitant]
     Dosage: UNK
  4. VYTORIN [Concomitant]
     Dosage: UNK

REACTIONS (1)
  - DRY MOUTH [None]
